FAERS Safety Report 4968866-4 (Version None)
Quarter: 2006Q2

REPORT INFORMATION
  Report Type: 
  Country: None (occurrence: None)
  Receive Date: 20060411
  Receipt Date: 20050812
  Transmission Date: 20061013
  Serious: Yes (Hospitalization, Disabling)
  Sender: FDA-Public Use
  Company Number: US-ROCHE-414410

PATIENT
  Age: 20 Year
  Sex: Female
  Weight: 69.9 kg

DRUGS (2)
  1. ACCUTANE [Suspect]
     Indication: ACNE
     Route: 048
     Dates: start: 19990825, end: 20000110
  2. ACCUTANE [Suspect]
     Route: 048
     Dates: start: 19990721, end: 19990824

REACTIONS (21)
  - ALOPECIA [None]
  - ANHEDONIA [None]
  - ANXIETY [None]
  - ARTHRALGIA [None]
  - COLITIS [None]
  - CROHN'S DISEASE [None]
  - CYSTITIS INTERSTITIAL [None]
  - DRY SKIN [None]
  - EMOTIONAL DISTRESS [None]
  - ENDOMETRIOSIS [None]
  - EPISTAXIS [None]
  - GASTRITIS [None]
  - GASTROINTESTINAL DISORDER [None]
  - INFLAMMATORY BOWEL DISEASE [None]
  - INTESTINAL HAEMORRHAGE [None]
  - IRRITABLE BOWEL SYNDROME [None]
  - LIP DRY [None]
  - MYALGIA [None]
  - OESOPHAGITIS ULCERATIVE [None]
  - PROCTITIS [None]
  - URINARY TRACT DISORDER [None]
